FAERS Safety Report 4949141-0 (Version None)
Quarter: 2006Q1

REPORT INFORMATION
  Report Type: 
  Country: None (occurrence: None)
  Receive Date: 20060321
  Receipt Date: 20060208
  Transmission Date: 20060701
  Serious: Yes (Death, Hospitalization)
  Sender: FDA-Public Use
  Company Number: US-MERCK-0602USA02297

PATIENT
  Age: 61 Year
  Sex: Male
  Weight: 128 kg

DRUGS (3)
  1. VIOXX [Suspect]
     Indication: RHEUMATOID ARTHRITIS
     Route: 048
     Dates: start: 19991004, end: 20000101
  2. VIOXX [Suspect]
     Route: 048
     Dates: end: 20030421
  3. OXYCONTIN [Concomitant]
     Route: 065

REACTIONS (22)
  - CARDIO-RESPIRATORY ARREST [None]
  - CHRONIC OBSTRUCTIVE PULMONARY DISEASE [None]
  - CONFUSIONAL STATE [None]
  - COR PULMONALE [None]
  - DEPRESSED LEVEL OF CONSCIOUSNESS [None]
  - DISORIENTATION [None]
  - GASTROINTESTINAL HAEMORRHAGE [None]
  - GLOSSODYNIA [None]
  - HAEMOGLOBIN ABNORMAL [None]
  - HYPOXIA [None]
  - JOINT SWELLING [None]
  - MENTAL STATUS CHANGES [None]
  - METABOLIC ENCEPHALOPATHY [None]
  - NECK PAIN [None]
  - NEUROPATHY PERIPHERAL [None]
  - OEDEMA PERIPHERAL [None]
  - PULMONARY HYPERTENSION [None]
  - RESPIRATORY FAILURE [None]
  - SEDATION [None]
  - SLEEP APNOEA SYNDROME [None]
  - STUPOR [None]
  - THROMBOCYTOPENIA [None]
